FAERS Safety Report 5145253-X (Version None)
Quarter: 2006Q4

REPORT INFORMATION
  Report Type: 
  Country: None (occurrence: None)
  Receive Date: 20061107
  Receipt Date: 20061024
  Transmission Date: 20070319
  Serious: Yes (Hospitalization)
  Sender: FDA-Public Use
  Company Number: US-ELI_LILLY_AND_COMPANY-US200610004422

PATIENT
  Age: 43 Year
  Sex: Female

DRUGS (6)
  1. CYMBALTA [Suspect]
     Indication: DEPRESSION
     Dosage: 120 MG, UNK
     Dates: start: 20060901
  2. CYMBALTA [Suspect]
     Dosage: 60 MG, UNK
     Dates: start: 20060801, end: 20060901
  3. CYMBALTA [Suspect]
     Dosage: 90 MG, UNK
     Dates: start: 20060901, end: 20060901
  4. CYMBALTA [Suspect]
     Dosage: 60 MG, UNK
  5. NEXIUM [Concomitant]
  6. AMBIEN [Concomitant]
     Indication: SLEEP DISORDER

REACTIONS (5)
  - ANGINA PECTORIS [None]
  - BLOOD PRESSURE INCREASED [None]
  - BURNING SENSATION [None]
  - CHEST DISCOMFORT [None]
  - DYSPNOEA [None]
